FAERS Safety Report 7275498-4 (Version None)
Quarter: 2011Q1

REPORT INFORMATION
  Report Type: 
  Country: None (occurrence: None)
  Receive Date: 20110204
  Receipt Date: 20110125
  Transmission Date: 20110831
  Serious: Yes (Other)
  Sender: FDA-Public Use
  Company Number: AU-JNJFOC-20090804663

PATIENT
  Age: 26 Year
  Sex: Male

DRUGS (3)
  1. SULFASALAZINE [Suspect]
     Indication: ANKYLOSING SPONDYLITIS
     Dosage: 12 HRS PRIOR TO HOSP
     Route: 065
  2. PARACETAMOL 500 MG TABLETS [Suspect]
     Indication: INTENTIONAL OVERDOSE
     Dosage: 12 HRS PRIOR TO HOSP
     Route: 065
  3. PARACETAMOL 500 MG TABLETS [Suspect]
     Route: 065

REACTIONS (8)
  - HYPERGLYCAEMIA [None]
  - KETOSIS [None]
  - COAGULOPATHY [None]
  - ACIDOSIS [None]
  - CONVULSION [None]
  - METHAEMOGLOBINAEMIA [None]
  - INTENTIONAL OVERDOSE [None]
  - LIVER FUNCTION TEST ABNORMAL [None]
